FAERS Safety Report 11009351 (Version 1)
Quarter: 2015Q2

REPORT INFORMATION
  Report Type: Spontaneous
  Country: AT (occurrence: AT)
  Receive Date: 20150410
  Receipt Date: 20150410
  Transmission Date: 20150821
  Serious: Yes (Other)
  Sender: FDA-Public Use
  Company Number: AT-BAYER-2015-094264

PATIENT
  Sex: Female

DRUGS (2)
  1. CIPROXIN [Suspect]
     Active Substance: CIPROFLOXACIN
     Indication: DIVERTICULUM
     Dosage: UNK
  2. URSOFALK [Interacting]
     Active Substance: URSODIOL
     Dosage: UNK

REACTIONS (4)
  - Intestinal mass [Unknown]
  - Drug interaction [Unknown]
  - Drug ineffective [Unknown]
  - Inflammatory marker increased [Unknown]

NARRATIVE: CASE EVENT DATE: 2015
